FAERS Safety Report 4863763-7 (Version None)
Quarter: 2005Q4

REPORT INFORMATION
  Report Type: 
  Country: None (occurrence: None)
  Receive Date: 20051222
  Receipt Date: 20050804
  Transmission Date: 20060501
  Serious: No
  Sender: FDA-Public Use
  Company Number: US-GLAXOSMITHKLINE-A0568995A

PATIENT
  Age: 27 Year
  Sex: Male

DRUGS (3)
  1. FLONASE [Suspect]
     Dosage: 2SPR TWICE PER DAY
     Route: 045
     Dates: start: 20020101
  2. ZYRTEC [Concomitant]
  3. TOPROL-XL [Concomitant]

REACTIONS (3)
  - ADENOIDITIS [None]
  - PALPITATIONS [None]
  - THROAT IRRITATION [None]
